FAERS Safety Report 11747527 (Version 4)
Quarter: 2015Q4

REPORT INFORMATION
  Report Type: Spontaneous
  Country: ES (occurrence: ES)
  Receive Date: 20151117
  Receipt Date: 20151216
  Transmission Date: 20160304
  Serious: Yes (Hospitalization)
  Sender: FDA-Public Use
  Company Number: ES-PFIZER INC-2015391451

PATIENT
  Age: 47 Year
  Sex: Female

DRUGS (1)
  1. FLUCONAZOLE. [Suspect]
     Active Substance: FLUCONAZOLE
     Indication: GENITAL CANDIDIASIS
     Dosage: UNK
     Route: 048

REACTIONS (1)
  - Drug eruption [Recovered/Resolved]
